FAERS Safety Report 9177757 (Version 2)
Quarter: 2013Q2

REPORT INFORMATION
  Report Type: Spontaneous
  Country: US (occurrence: US)
  Receive Date: 20121009
  Receipt Date: 20130415
  Transmission Date: 20140414
  Serious: Yes (Other)
  Sender: FDA-Public Use
  Company Number: US-RB-037355-12

PATIENT
  Age: 22 Year
  Sex: Female

DRUGS (4)
  1. SUBOXONE FILM [Suspect]
     Indication: DRUG DEPENDENCE
     Dosage: SUBOXONE FILM
     Route: 060
     Dates: start: 201101, end: 201203
  2. SUBUTEX [Suspect]
     Indication: DRUG DEPENDENCE
     Dosage: 8 MG TO 12 MG
     Route: 065
     Dates: start: 201203, end: 201206
  3. NICOTINE [Suspect]
     Indication: TOBACCO USER
     Dosage: DETAILS UNKNOWN
     Route: 065
  4. CELEXA [Concomitant]
     Indication: DEPRESSION
     Route: 065
     Dates: start: 201203, end: 201206

REACTIONS (6)
  - Substance abuse [Not Recovered/Not Resolved]
  - Wrong technique in drug usage process [Not Recovered/Not Resolved]
  - Exposure during pregnancy [Recovered/Resolved]
  - Nausea [Recovered/Resolved]
  - Vomiting [Recovered/Resolved]
  - Foetal hypokinesia [Recovered/Resolved]
